FAERS Safety Report 5357209-2 (Version None)
Quarter: 2007Q2

REPORT INFORMATION
  Report Type: 
  Country: None (occurrence: None)
  Receive Date: 20070614
  Receipt Date: 20070606
  Transmission Date: 20071010
  Serious: Yes (Other)
  Sender: FDA-Public Use
  Company Number: AR-JNJFOC-20070602118

PATIENT
  Sex: Female

DRUGS (2)
  1. IBUPIRAC 400MG [Suspect]
     Indication: PYREXIA
     Route: 048
  2. METFORMIN HCL [Concomitant]
     Indication: DIABETES MELLITUS

REACTIONS (1)
  - HYPERGLYCAEMIA [None]
